FAERS Safety Report 17151953 (Version 1)
Quarter: 2019Q4

REPORT INFORMATION
  Report Type: Other
  Country: SK (occurrence: SK)
  Receive Date: 20191213
  Receipt Date: 20191213
  Transmission Date: 20200122
  Serious: Yes (Hospitalization, Other)
  Sender: FDA-Public Use
  Company Number: SK-EMD SERONO-9134236

PATIENT
  Age: 26 Year
  Sex: Male

DRUGS (3)
  1. CLENBUTEROL [Concomitant]
     Active Substance: CLENBUTEROL
     Indication: MUSCLE MASS
  2. SOMATROPIN. [Suspect]
     Active Substance: SOMATROPIN
     Indication: MUSCLE MASS
  3. TESTOSTERONE. [Concomitant]
     Active Substance: TESTOSTERONE
     Indication: MUSCLE MASS

REACTIONS (4)
  - Hypertension [Recovered/Resolved]
  - Intentional product misuse [Recovered/Resolved]
  - Phaeochromocytoma [Recovered/Resolved]
  - Drug abuse [Recovered/Resolved]
